FAERS Safety Report 10128094 (Version 5)
Quarter: 2016Q4

REPORT INFORMATION
  Report Type: Report from Study
  Country: CA (occurrence: CA)
  Receive Date: 20140428
  Receipt Date: 20161218
  Transmission Date: 20170206
  Serious: Yes (Hospitalization, Other)
  Sender: FDA-Public Use
  Company Number: CA-ROCHE-1390739

PATIENT
  Sex: Female
  Weight: 67.13 kg

DRUGS (21)
  1. DIPHENHYDRAMINE HCL [Concomitant]
     Active Substance: DIPHENHYDRAMINE HYDROCHLORIDE
     Indication: PREMEDICATION
     Route: 048
  2. ACETAMINOPHEN. [Concomitant]
     Active Substance: ACETAMINOPHEN
     Indication: PREMEDICATION
     Route: 048
  3. PLAQUENIL [Concomitant]
     Active Substance: HYDROXYCHLOROQUINE SULFATE
  4. TYLENOL WITH CODEINE [Concomitant]
     Active Substance: ACETAMINOPHEN\CODEINE PHOSPHATE
  5. AMITRIPTYLINE [Concomitant]
     Active Substance: AMITRIPTYLINE
  6. PENNSAID [Concomitant]
     Active Substance: DICLOFENAC SODIUM
  7. PROMETRIUM [Concomitant]
     Active Substance: PROGESTERONE
  8. METOPROLOL. [Concomitant]
     Active Substance: METOPROLOL
  9. LEFLUNOMIDE. [Concomitant]
     Active Substance: LEFLUNOMIDE
  10. DOXYCYCLINE. [Concomitant]
     Active Substance: DOXYCYCLINE
  11. WARFARIN [Concomitant]
     Active Substance: WARFARIN
  12. AMIODARONE [Concomitant]
     Active Substance: AMIODARONE
  13. RITUXAN [Suspect]
     Active Substance: RITUXIMAB
     Indication: RHEUMATOID ARTHRITIS
     Dosage: FREQUENCY: DAY 1, 15,?DATE OF LAST DOSE PRIOR TO EVENT : 23/OCT/2013?LAST DOSE: 29/JUL/2015 AND 12/F
     Route: 042
     Dates: start: 20130325
  14. OMEGA 3 [Concomitant]
     Active Substance: OMEGA-3 FATTY ACIDS
  15. GABAPENTIN. [Concomitant]
     Active Substance: GABAPENTIN
  16. SYNTHROID [Concomitant]
     Active Substance: LEVOTHYROXINE SODIUM
  17. NOVAMILOR [Concomitant]
  18. HYDROCHLOROTHIAZIDE. [Concomitant]
     Active Substance: HYDROCHLOROTHIAZIDE
  19. METHYLPREDNISOLONE. [Concomitant]
     Active Substance: METHYLPREDNISOLONE
     Indication: PREMEDICATION
     Route: 042
  20. MIDAMOR [Concomitant]
     Active Substance: AMILORIDE HYDROCHLORIDE
  21. AVAMYS [Concomitant]
     Active Substance: FLUTICASONE FUROATE
     Route: 065

REACTIONS (3)
  - Colitis [Unknown]
  - Spinal column stenosis [Unknown]
  - Weight increased [Unknown]

NARRATIVE: CASE EVENT DATE: 2016
